FAERS Safety Report 5684726-8 (Version None)
Quarter: 2008Q1

REPORT INFORMATION
  Report Type: 
  Country: None (occurrence: None)
  Receive Date: 20080327
  Receipt Date: 20080327
  Transmission Date: 20080703
  Serious: Yes (Disabling)
  Sender: FDA-Public Use
  Company Number: None

PATIENT
  Age: 24 Year
  Sex: Male
  Weight: 80 kg

DRUGS (3)
  1. OXALIPLATIN [Suspect]
     Dosage: 200 MG  IV
     Route: 042
     Dates: start: 20080326, end: 20080326
  2. LEUCOVORIN CALCIUM [Concomitant]
  3. FLUOROURACIL [Concomitant]

REACTIONS (1)
  - HYPERSENSITIVITY [None]
